FAERS Safety Report 18841137 (Version 1)
Quarter: 2021Q1

REPORT INFORMATION
  Report Type: Spontaneous
  Country: US (occurrence: US)
  Receive Date: 20210203
  Receipt Date: 20210203
  Transmission Date: 20210419
  Serious: Yes (Other)
  Sender: FDA-Public Use
  Company Number: US-GLAXOSMITHKLINE-USCH2021002550

PATIENT
  Age: 66 Year
  Sex: Female

DRUGS (4)
  1. GAS?X EXTRA STRENGTH [Suspect]
     Active Substance: DIMETHICONE
     Indication: GASTROINTESTINAL PAIN
  2. GAS?X EXTRA STRENGTH [Suspect]
     Active Substance: DIMETHICONE
     Indication: ABDOMINAL PAIN UPPER
  3. GAS?X EXTRA STRENGTH [Suspect]
     Active Substance: DIMETHICONE
     Indication: ABDOMINAL DISTENSION
  4. GAS?X EXTRA STRENGTH [Suspect]
     Active Substance: DIMETHICONE
     Indication: FLATULENCE

REACTIONS (6)
  - Abdominal pain upper [Unknown]
  - Product use in unapproved indication [Unknown]
  - Haematochezia [Unknown]
  - Overdose [Unknown]
  - Faeces discoloured [Unknown]
  - Drug effective for unapproved indication [Unknown]

NARRATIVE: CASE EVENT DATE: 20210127
